FAERS Safety Report 14360698 (Version 1)
Quarter: 2018Q1

REPORT INFORMATION
  Report Type: Spontaneous
  Country: ES (occurrence: ES)
  Receive Date: 20180106
  Receipt Date: 20180106
  Transmission Date: 20180509
  Serious: Yes (Hospitalization)
  Sender: FDA-Public Use
  Company Number: ES-MYLANLABS-2018M1001417

PATIENT
  Age: 35 Year
  Sex: Male

DRUGS (2)
  1. TRETINOIN. [Suspect]
     Active Substance: TRETINOIN
     Indication: ACUTE PROMYELOCYTIC LEUKAEMIA
     Dosage: FROM DAY-1
     Route: 048
  2. IDARUBICIN [Suspect]
     Active Substance: IDARUBICIN
     Indication: ACUTE PROMYELOCYTIC LEUKAEMIA
     Dosage: ON DAYS 2, 4, 6 AND 8
     Route: 042

REACTIONS (3)
  - Myocarditis [Recovered/Resolved]
  - Pleural effusion [Recovered/Resolved]
  - Cardiac failure congestive [Recovered/Resolved]
